FAERS Safety Report 4582763-8 (Version None)
Quarter: 2005Q1

REPORT INFORMATION
  Report Type: 
  Country: None (occurrence: None)
  Receive Date: 20050121
  Receipt Date: 20041013
  Transmission Date: 20050727
  Serious: Yes (Other)
  Sender: FDA-Public Use
  Company Number: 2004054363

PATIENT
  Age: 61 Year
  Sex: Female

DRUGS (6)
  1. RELPAX [Suspect]
     Indication: MIGRAINE
     Dosage: (40 MG)
  2. LEVOTHYROXINE SODIUM [Concomitant]
  3. FLUOXETINE HYDROCHLORIDE [Concomitant]
  4. DESIPRAMINE HCL [Concomitant]
  5. SPIRONOLACTONE [Concomitant]
  6. VERAPAMIL [Concomitant]

REACTIONS (2)
  - DYSPNOEA [None]
  - SUPRAVENTRICULAR TACHYCARDIA [None]
